FAERS Safety Report 9266644 (Version 2)
Quarter: 2013Q2

REPORT INFORMATION
  Report Type: Spontaneous
  Country: US (occurrence: US)
  Receive Date: 20130502
  Receipt Date: 20130507
  Transmission Date: 20140414
  Serious: No
  Sender: FDA-Public Use
  Company Number: US-009507513-1304USA015206

PATIENT
  Age: 29 Year
  Sex: Female
  Weight: 71.2 kg

DRUGS (1)
  1. NUVARING [Suspect]
     Indication: CONTRACEPTION
     Dosage: 3 WK IN AND 1 WK OUT
     Route: 067
     Dates: start: 20130403

REACTIONS (8)
  - Ageusia [Unknown]
  - Anosmia [Unknown]
  - Menstrual disorder [Unknown]
  - Menstruation normal [Unknown]
  - Muscle spasms [Unknown]
  - Nausea [Unknown]
  - Device expulsion [Unknown]
  - Product quality issue [Unknown]
